FAERS Safety Report 26090964 (Version 1)
Quarter: 2025Q4

REPORT INFORMATION
  Report Type: Spontaneous
  Country: EU (occurrence: EU)
  Receive Date: 20251126
  Receipt Date: 20251126
  Transmission Date: 20260118
  Serious: Yes (Other)
  Sender: AUROBINDO
  Company Number: EU-ABBVIE-6532705

PATIENT
  Age: 77 Year
  Sex: Male

DRUGS (20)
  1. AZACITIDINE [Suspect]
     Active Substance: AZACITIDINE
     Indication: Acute myeloid leukaemia
     Dosage: 75 GRAM, ONCE A DAY (END OF CYCLE(7 DAYS)
     Route: 065
     Dates: start: 20240916, end: 20240922
  2. AZACITIDINE [Suspect]
     Active Substance: AZACITIDINE
     Dosage: 75 GRAM, ONCE A DAY (DOSE INTERRUPTED)
     Route: 065
     Dates: start: 20241028, end: 20241031
  3. AZACITIDINE [Suspect]
     Active Substance: AZACITIDINE
     Dosage: 75 GRAM, ONCE A DAY (END OF CYCLE(7 DAYS)
     Route: 065
     Dates: start: 20241105, end: 20241105
  4. AZACITIDINE [Suspect]
     Active Substance: AZACITIDINE
     Dosage: 75 GRAM, ONCE A DAY (END OF CYCLE(7 DAYS)
     Route: 065
     Dates: start: 20241210, end: 20241217
  5. VENETOCLAX [Suspect]
     Active Substance: VENETOCLAX
     Indication: Acute myeloid leukaemia
     Dosage: 10 MILLIGRAM, ONCE A DAY (RAMP- UP DOSE)
     Dates: start: 20240916, end: 20240916
  6. VENETOCLAX [Suspect]
     Active Substance: VENETOCLAX
     Dosage: 20 MILLIGRAM, ONCE A DAY (RAMP- UP DOSE)
     Dates: start: 20240917, end: 20240917
  7. VENETOCLAX [Suspect]
     Active Substance: VENETOCLAX
     Dosage: 50 MILLIGRAM, ONCE A DAY (RAMP- UP DOSE)
     Dates: start: 20240918, end: 20240918
  8. VENETOCLAX [Suspect]
     Active Substance: VENETOCLAX
     Dosage: 70 MILLIGRAM, ONCE A DAY (END OF CYCLE(28 DAYS)
     Dates: start: 20240919, end: 20241014
  9. VENETOCLAX [Suspect]
     Active Substance: VENETOCLAX
     Dosage: 400 MILLIGRAM, ONCE A DAY (END OF CYCLE(28 DAYS)
     Dates: start: 20241028, end: 20241127
  10. VENETOCLAX [Suspect]
     Active Substance: VENETOCLAX
     Dosage: 400 MILLIGRAM, ONCE A DAY (END OF CYCLE(28 DAYS)
     Dates: start: 20241210, end: 20241220
  11. VENETOCLAX [Suspect]
     Active Substance: VENETOCLAX
     Dosage: END OF CYCLE(28 DAYS)
     Dates: start: 20241221, end: 20250106
  12. FILGRASTIM [Concomitant]
     Active Substance: FILGRASTIM
     Indication: Febrile neutropenia
     Dosage: UNK
     Route: 065
     Dates: start: 20241020, end: 20241020
  13. FILGRASTIM [Concomitant]
     Active Substance: FILGRASTIM
     Dosage: UNK
     Route: 065
     Dates: start: 20241230, end: 20250109
  14. ESOMEPRAZOLE [Concomitant]
     Active Substance: ESOMEPRAZOLE
     Indication: Chronic gastritis
     Dosage: 20 MILLIGRAM
  15. ALLOPURINOL [Concomitant]
     Active Substance: ALLOPURINOL
     Indication: Prophylaxis
     Dosage: 300 MILLIGRAM, ONCE A DAY
     Dates: start: 202409, end: 202409
  16. POSACONAZOLE [Concomitant]
     Active Substance: POSACONAZOLE
     Indication: Prophylaxis
     Dosage: 300 MILLIGRAM, ONCE A DAY
     Dates: start: 202409, end: 202409
  17. PAXLOVID [Concomitant]
     Active Substance: NIRMATRELVIR\RITONAVIR
     Indication: COVID-19
     Dosage: 300/100 MG
     Dates: start: 20241014, end: 20241018
  18. AZITHROMYCIN [Concomitant]
     Active Substance: AZITHROMYCIN
     Indication: COVID-19
     Dosage: 500 MILLIGRAM, ONCE A DAY
     Dates: start: 20241014, end: 20241019
  19. PIPERACILLIN AND TAZOBACTAM [Concomitant]
     Active Substance: PIPERACILLIN SODIUM\TAZOBACTAM SODIUM
     Indication: Urinary tract infection enterococcal
     Dosage: 4/0.5 G
     Dates: start: 20241018, end: 20241024
  20. OXATOMIDE [Concomitant]
     Active Substance: OXATOMIDE
     Indication: Pruritus
     Dosage: 30 MILLIGRAM, AS NECESSARY
     Dates: start: 20250120

REACTIONS (2)
  - Acute myeloid leukaemia [Not Recovered/Not Resolved]
  - Neutropenia [Not Recovered/Not Resolved]

NARRATIVE: CASE EVENT DATE: 20250113
